FAERS Safety Report 13057939 (Version 1)
Quarter: 2016Q4

REPORT INFORMATION
  Report Type: Report from Study
  Country: DE (occurrence: DE)
  Receive Date: 20161223
  Receipt Date: 20161223
  Transmission Date: 20170207
  Serious: Yes (Hospitalization)
  Sender: FDA-Public Use
  Company Number: DE-ROCHE-1871043

PATIENT
  Age: 72 Year
  Sex: Male

DRUGS (3)
  1. CAPECITABINE. [Suspect]
     Active Substance: CAPECITABINE
     Indication: HER-2 POSITIVE GASTRIC CANCER
     Dosage: DATE OF MOST RECENT DOSE PRIOR TO SAE: 04/AUG/2016?D1-14 IN 3 WEEKLY SCHEDULE
     Route: 048
     Dates: start: 20160608
  2. TRASTUZUMAB [Suspect]
     Active Substance: TRASTUZUMAB
     Indication: HER-2 POSITIVE GASTRIC CANCER
     Dosage: DATE OF MOST RECENT DOSE PRIOR TO SAE: 21/JUL/2016?D1 IN 3 WEEKLU SCHEDULE
     Route: 042
     Dates: start: 20160608
  3. CISPLATIN. [Suspect]
     Active Substance: CISPLATIN
     Indication: HER-2 POSITIVE GASTRIC CANCER
     Dosage: DATE OF MOST RECENT DOSE PRIOR TO SAE: 08/JUN/2016?D1 IN 3 WEEKLU SCHEDULE
     Route: 042
     Dates: start: 20160608

REACTIONS (1)
  - Anastomotic complication [Recovered/Resolved]

NARRATIVE: CASE EVENT DATE: 20160917
